FAERS Safety Report 4459032-X (Version None)
Quarter: 2004Q3

REPORT INFORMATION
  Report Type: 
  Country: None (occurrence: None)
  Receive Date: 20040927
  Receipt Date: 20040913
  Transmission Date: 20050211
  Serious: Yes (Death, Other)
  Sender: FDA-Public Use
  Company Number: GB-JNJFOC-20040707496

PATIENT
  Age: 54 Year
  Sex: Male

DRUGS (7)
  1. RETEPLASE [Suspect]
     Indication: MYOCARDIAL INFARCTION
     Route: 042
  2. ASPIRIN [Concomitant]
     Indication: MYOCARDIAL INFARCTION
  3. ATENOLOL [Concomitant]
     Indication: MYOCARDIAL INFARCTION
  4. INDOMETHACIN [Concomitant]
  5. ISOSORBIDE [Concomitant]
  6. ENOXAPARIN SODIUM [Concomitant]
     Indication: MYOCARDIAL INFARCTION
  7. DIAMORPHINE [Concomitant]

REACTIONS (13)
  - ABDOMINAL PAIN [None]
  - ANAPHYLACTIC REACTION [None]
  - ARTERIAL RUPTURE [None]
  - CARDIAC TAMPONADE [None]
  - CARDIO-RESPIRATORY ARREST [None]
  - CIRCULATORY COLLAPSE [None]
  - CONVULSION [None]
  - CORONARY ARTERY DISEASE [None]
  - HYPERAESTHESIA [None]
  - HYPERSENSITIVITY [None]
  - HYPOTENSION [None]
  - PERICARDIAL EFFUSION [None]
  - SWELLING FACE [None]
